FAERS Safety Report 8023039-6 (Version None)
Quarter: 2012Q1

REPORT INFORMATION
  Report Type: 
  Country: None (occurrence: None)
  Receive Date: 20120104
  Receipt Date: 20111227
  Transmission Date: 20120608
  Serious: Yes (Hospitalization)
  Sender: FDA-Public Use
  Company Number: US-BAYER-2011-049722

PATIENT
  Age: 28 Year
  Sex: Female
  Weight: 57.596 kg

DRUGS (11)
  1. YAZ [Suspect]
     Indication: CONTRACEPTION
     Dosage: UNK
     Dates: start: 20080226, end: 20080424
  2. YASMIN [Suspect]
     Dosage: UNK
     Dates: start: 20080424, end: 20080715
  3. DROSPIRENONE AND ETHINYL ESTRADIOL [Suspect]
     Indication: CONTRACEPTION
     Dosage: UNK
     Dates: start: 20080716, end: 20090603
  4. METHYLPREDNISOLONE [Concomitant]
     Indication: NASOPHARYNGITIS
     Dosage: 4 MG, UNK
     Route: 048
     Dates: start: 20090525
  5. CHERATUSSIN AC [Concomitant]
     Indication: NASOPHARYNGITIS
     Dosage: UNK
     Route: 048
     Dates: start: 20090525, end: 20090527
  6. ESTRACE [Concomitant]
     Dosage: UNK
     Route: 067
     Dates: start: 20090513, end: 20090603
  7. YASMIN [Suspect]
     Indication: CONTRACEPTION
     Dosage: UNK
     Dates: start: 20030913, end: 20040801
  8. AZITHROMYCIN [Concomitant]
     Indication: NASOPHARYNGITIS
     Dosage: 250 MG, UNK
     Route: 048
     Dates: start: 20090525, end: 20090530
  9. YASMIN [Suspect]
     Dosage: UNK
     Dates: start: 20050216, end: 20060117
  10. NSAID'S [Concomitant]
     Dosage: UNK
     Route: 048
     Dates: start: 20010101, end: 20110101
  11. FLUCONAZOLE [Concomitant]
     Dosage: 150 MG, Q72HR
     Route: 048
     Dates: start: 20090520, end: 20090523

REACTIONS (15)
  - VENOUS THROMBOSIS LIMB [None]
  - PULMONARY EMBOLISM [None]
  - MENTAL DISORDER [None]
  - OEDEMA PERIPHERAL [None]
  - DYSPNOEA [None]
  - EMOTIONAL DISTRESS [None]
  - CHEST DISCOMFORT [None]
  - INJURY [None]
  - ANHEDONIA [None]
  - CHEST PAIN [None]
  - PAIN IN EXTREMITY [None]
  - DISCOMFORT [None]
  - DEEP VEIN THROMBOSIS [None]
  - PAIN [None]
  - ANXIETY [None]
